FAERS Safety Report 12061351 (Version 1)
Quarter: 2016Q1

REPORT INFORMATION
  Report Type: Spontaneous
  Country: US (occurrence: US)
  Receive Date: 20160210
  Receipt Date: 20160210
  Transmission Date: 20160526
  Serious: No
  Sender: FDA-Public Use
  Company Number: US-ALLERGAN-1503151US

PATIENT
  Age: 62 Year
  Sex: Male
  Weight: 86.21 kg

DRUGS (27)
  1. PROZAC [Concomitant]
     Active Substance: FLUOXETINE HYDROCHLORIDE
     Dosage: 40 MG, QD
     Route: 048
  2. FLEXERIL [Concomitant]
     Active Substance: CYCLOBENZAPRINE HYDROCHLORIDE
     Dosage: 10 MG, UNK
  3. BOTOX [Suspect]
     Active Substance: ONABOTULINUMTOXINA
     Indication: URINARY INCONTINENCE
     Dosage: 300 UNITS, SINGLE
     Dates: start: 20140722, end: 20140722
  4. ALBUTEROL. [Concomitant]
     Active Substance: ALBUTEROL
     Dosage: 2 UNITS, Q6HR
     Route: 055
  5. CRANBERRY. [Concomitant]
     Active Substance: CRANBERRY
     Dosage: 900 MG, UNK
     Route: 048
  6. ZOCOR [Concomitant]
     Active Substance: SIMVASTATIN
     Dosage: 40 MG, UNK
     Route: 048
  7. FLEXERIL [Concomitant]
     Active Substance: CYCLOBENZAPRINE HYDROCHLORIDE
     Dosage: 10 MG, QAM
  8. ACIDOPHILUS [Concomitant]
     Active Substance: LACTOBACILLUS ACIDOPHILUS
     Dosage: 1 UNITS, TID WITH MEALS
     Route: 048
  9. MANDELAMINE [Concomitant]
     Active Substance: METHENAMINE MANDELATE
     Dosage: 1 G, UNK
     Route: 048
  10. BOTOX [Suspect]
     Active Substance: ONABOTULINUMTOXINA
     Dosage: 300 UNITS, SINGLE
     Dates: start: 20131002, end: 20131002
  11. CHOLECALCIFEROL [Concomitant]
     Active Substance: CHOLECALCIFEROL
     Dosage: 5000 UNITS, QD
     Route: 048
  12. FLEXERIL [Concomitant]
     Active Substance: CYCLOBENZAPRINE HYDROCHLORIDE
     Dosage: 5 MG, Q AFTERNOON
  13. PEPCID [Concomitant]
     Active Substance: FAMOTIDINE
     Dosage: 40 MG, UNK
     Route: 048
  14. NORCO [Concomitant]
     Active Substance: ACETAMINOPHEN\HYDROCODONE BITARTRATE
     Indication: PAIN
     Dosage: 1 UNITS, PRN
     Route: 048
  15. NIZORAL [Concomitant]
     Active Substance: KETOCONAZOLE
     Dosage: 3 TIMES WEEKLY
     Route: 061
  16. DITROPAN [Concomitant]
     Active Substance: OXYBUTYNIN CHLORIDE
     Dosage: 5 MG, UNK
     Route: 048
  17. NUCYNTA [Concomitant]
     Active Substance: TAPENTADOL HYDROCHLORIDE
     Dosage: 50 MG, Q4HR
     Route: 048
  18. LAMISIL [Concomitant]
     Active Substance: TERBINAFINE HYDROCHLORIDE
     Dosage: AS DIRECTED
  19. ASCORBIC ACID. [Concomitant]
     Active Substance: ASCORBIC ACID
     Dosage: 500 MG, QD
     Route: 048
  20. ADVAIR HFA [Concomitant]
     Active Substance: FLUTICASONE PROPIONATE\SALMETEROL XINAFOATE
     Dosage: 1 UNITS, BID
     Route: 048
  21. MYRBETRIQ [Concomitant]
     Active Substance: MIRABEGRON
     Dosage: 1 UNITS, QD
     Route: 048
  22. PROTONIX [Concomitant]
     Active Substance: PANTOPRAZOLE SODIUM
     Dosage: 40 MG, UNK
     Route: 048
  23. KLOR-CON [Concomitant]
     Active Substance: POTASSIUM CHLORIDE
     Dosage: 10 MEQ, UNK
     Route: 048
  24. LIORESAL [Concomitant]
     Active Substance: BACLOFEN
     Dosage: 1-TABLETS (10MG-20MG TOTAL), BID
     Route: 048
  25. D-MANNOSE [Concomitant]
     Dosage: 500 MG, TID
     Route: 048
  26. LASIX [Concomitant]
     Active Substance: FUROSEMIDE
     Dosage: 20 MG, QD
     Route: 048
  27. NEURONTIN [Concomitant]
     Active Substance: GABAPENTIN
     Dosage: 600 MG, QID
     Route: 048

REACTIONS (4)
  - Rash [Unknown]
  - Off label use [Unknown]
  - Dyspnoea [Unknown]
  - Dysphagia [Unknown]

NARRATIVE: CASE EVENT DATE: 20141107
